FAERS Safety Report 8185465-4 (Version None)
Quarter: 2012Q1

REPORT INFORMATION
  Report Type: 
  Country: None (occurrence: None)
  Receive Date: 20120305
  Receipt Date: 20120228
  Transmission Date: 20120608
  Serious: Yes (Hospitalization)
  Sender: FDA-Public Use
  Company Number: CH-PFIZER INC-2012052234

PATIENT
  Age: 80 Year
  Sex: Female

DRUGS (10)
  1. PLAVIX [Concomitant]
  2. TENORMIN [Concomitant]
  3. CIPROFLOXACIN HYDROCHLORIDE [Suspect]
     Indication: SUPERINFECTION
     Dosage: 500 MG, 2X/DAY
     Route: 048
     Dates: start: 20111129, end: 20111207
  4. DIAMICRON [Concomitant]
  5. PANTOPRAZOLE [Concomitant]
  6. ONGLYZA [Concomitant]
  7. ASPIRIN [Concomitant]
  8. NORVASC [Concomitant]
  9. FENOFIBRATE [Concomitant]
  10. CLINDAMYCIN HCL [Suspect]
     Indication: SUPERINFECTION
     Dosage: 600 MG, 3X/DAY
     Route: 048
     Dates: start: 20111129, end: 20111207

REACTIONS (2)
  - TOXIC EPIDERMAL NECROLYSIS [None]
  - STEVENS-JOHNSON SYNDROME [None]
